FAERS Safety Report 10461852 (Version 2)
Quarter: 2014Q4

REPORT INFORMATION
  Report Type: Spontaneous
  Country: NO (occurrence: NO)
  Receive Date: 20140918
  Receipt Date: 20141020
  Transmission Date: 20150528
  Serious: Yes (Other)
  Sender: FDA-Public Use
  Company Number: NO-SA-2014SA125543

PATIENT
  Age: 44 Year
  Sex: Female

DRUGS (6)
  1. IBUPROFEN. [Concomitant]
     Active Substance: IBUPROFEN
  2. NEURONTIN [Concomitant]
     Active Substance: GABAPENTIN
  3. LEVAXIN [Concomitant]
     Active Substance: LEVOTHYROXINE SODIUM
  4. BACLOFEN. [Concomitant]
     Active Substance: BACLOFEN
  5. AUBAGIO [Suspect]
     Active Substance: TERIFLUNOMIDE
     Indication: MULTIPLE SCLEROSIS
     Route: 048
     Dates: start: 20140819, end: 20140905
  6. YASMIN [Concomitant]
     Active Substance: DROSPIRENONE\ETHINYL ESTRADIOL

REACTIONS (1)
  - Depressive symptom [Recovering/Resolving]
